FAERS Safety Report 7314431-3 (Version None)
Quarter: 2011Q1

REPORT INFORMATION
  Report Type: 
  Country: None (occurrence: None)
  Receive Date: 20110225
  Receipt Date: 20100819
  Transmission Date: 20110831
  Serious: Yes (Other)
  Sender: FDA-Public Use
  Company Number: US-MYLANLABS-2010S1015208

PATIENT
  Sex: Female

DRUGS (3)
  1. SOTRET [Suspect]
     Indication: ACNE
     Dates: start: 20061101, end: 20061201
  2. ACCUTANE [Suspect]
     Indication: ACNE
     Dates: start: 20060101, end: 20060701
  3. AMNESTEEM [Suspect]
     Indication: ACNE
     Dates: start: 20060701, end: 20061101

REACTIONS (1)
  - INFLAMMATORY BOWEL DISEASE [None]
